FAERS Safety Report 19858258 (Version 1)
Quarter: 2021Q3

REPORT INFORMATION
  Report Type: Spontaneous
  Country: JP (occurrence: JP)
  Receive Date: 20210921
  Receipt Date: 20210921
  Transmission Date: 20211014
  Serious: Yes (Other)
  Sender: FDA-Public Use
  Company Number: JP-ROCHE-2912458

PATIENT
  Age: 7 Decade
  Sex: Male

DRUGS (2)
  1. XELODA [Suspect]
     Active Substance: CAPECITABINE
     Indication: PRODUCT USED FOR UNKNOWN INDICATION
     Route: 048
  2. OXALIPLATIN. [Concomitant]
     Active Substance: OXALIPLATIN
     Route: 041

REACTIONS (2)
  - Venoocclusive liver disease [Unknown]
  - Platelet count decreased [Unknown]
